FAERS Safety Report 20455767 (Version 1)
Quarter: 2022Q1

REPORT INFORMATION
  Report Type: Spontaneous
  Country: GB (occurrence: GB)
  Receive Date: 20220210
  Receipt Date: 20220210
  Transmission Date: 20220423
  Serious: Yes (Life-Threatening, Hospitalization)
  Sender: FDA-Public Use
  Company Number: GB-MYLANLABS-2022M1011232

PATIENT
  Age: 28 Year
  Sex: Female

DRUGS (6)
  1. FENTANYL [Suspect]
     Active Substance: FENTANYL
     Indication: Epidural analgesia
     Dosage: 1MICROG/ML, TWO TEST DOSES
     Route: 065
  2. FENTANYL [Suspect]
     Active Substance: FENTANYL
     Dosage: PATIENT-CONTROLLED EPIDURAL ANALGESIA (PCEA) PUMP WAS SET UP WITH A BACKGROUND INFUSION OF 5ML/H.
     Route: 008
  3. FENTANYL [Suspect]
     Active Substance: FENTANYL
     Indication: Spinal anaesthesia
     Dosage: 20 MICROGRAM; SPINAL
  4. BUPIVACAINE [Suspect]
     Active Substance: BUPIVACAINE
     Indication: Epidural analgesia
     Dosage: TWO TEST DOSES
     Route: 065
  5. BUPIVACAINE [Suspect]
     Active Substance: BUPIVACAINE
     Indication: Drug therapy
     Dosage: PATIENT-CONTROLLED EPIDURAL ANALGESIA (PCEA) PUMP WAS SET UP WITH A BACKGROUND INFUSION OF 5ML/H.
     Route: 008
  6. BUPIVACAINE [Suspect]
     Active Substance: BUPIVACAINE
     Indication: Spinal anaesthesia
     Dosage: SPINAL

REACTIONS (2)
  - Anaesthetic complication [Recovered/Resolved]
  - Maternal exposure during pregnancy [Recovered/Resolved]
